FAERS Safety Report 9184043 (Version 1)
Quarter: 2013Q1

REPORT INFORMATION
  Report Type: Spontaneous
  Country: US (occurrence: US)
  Receive Date: 20130322
  Receipt Date: 20130322
  Transmission Date: 20140127
  Serious: Yes (Other)
  Sender: FDA-Public Use
  Company Number: US-BRISTOL-MYERS SQUIBB COMPANY-16714198

PATIENT
  Age: 65 Year
  Sex: Male

DRUGS (5)
  1. ERBITUX [Suspect]
     Indication: RECTAL CANCER
     Route: 042
     Dates: start: 20120613, end: 20120613
  2. 5-FLUOROURACIL [Suspect]
     Dates: start: 20120612
  3. LEUCOVORIN [Suspect]
     Dates: start: 20120612
  4. OXALIPLATIN [Suspect]
     Dates: start: 20120612
  5. NEULASTA [Concomitant]
     Dates: start: 20120613

REACTIONS (3)
  - Pyrexia [Recovered/Resolved]
  - Vomiting [Recovered/Resolved]
  - Rash [Recovered/Resolved]
